FAERS Safety Report 6285285-1 (Version None)
Quarter: 2009Q3

REPORT INFORMATION
  Report Type: 
  Country: None (occurrence: None)
  Receive Date: 20090727
  Receipt Date: 20090720
  Transmission Date: 20100115
  Serious: Yes (Other)
  Sender: FDA-Public Use
  Company Number: US-ALLERGAN-0910331US

PATIENT

DRUGS (1)
  1. BOTOX [Suspect]
     Indication: DYSTONIA

REACTIONS (1)
  - AUTOIMMUNE DISORDER [None]
